FAERS Safety Report 7109272-6 (Version None)
Quarter: 2010Q4

REPORT INFORMATION
  Report Type: 
  Country: None (occurrence: None)
  Receive Date: 20101117
  Receipt Date: 20101104
  Transmission Date: 20110411
  Serious: Yes (Other)
  Sender: FDA-Public Use
  Company Number: NL-MYLANLABS-2010S1020307

PATIENT
  Age: 25 Year
  Sex: Female
  Weight: 70 kg

DRUGS (4)
  1. VENLAFAXINE [Suspect]
     Indication: DEPRESSION
     Dosage: 1DD1
     Route: 048
     Dates: start: 20090803, end: 20100813
  2. ETHINYLESTRADIOL/LEVONORGESTREL A [Concomitant]
     Indication: PRODUCT USED FOR UNKNOWN INDICATION
     Route: 048
     Dates: start: 20090731
  3. MELATONIN [Concomitant]
     Indication: PRODUCT USED FOR UNKNOWN INDICATION
     Dosage: VOOR DE NACHT 1 TABLET
     Route: 048
     Dates: start: 20091208
  4. FORADIL [Concomitant]
     Dosage: 2 X DAAGS 1 INHALATIE
     Route: 055
     Dates: start: 20091106

REACTIONS (4)
  - HIGH DENSITY LIPOPROTEIN DECREASED [None]
  - HYPERTENSION [None]
  - LOW DENSITY LIPOPROTEIN INCREASED [None]
  - TACHYCARDIA [None]
